FAERS Safety Report 23599213 (Version 1)
Quarter: 2024Q1

REPORT INFORMATION
  Report Type: Spontaneous
  Country: CA (occurrence: CA)
  Receive Date: 20240306
  Receipt Date: 20240306
  Transmission Date: 20240410
  Serious: Yes (Hospitalization, Other)
  Sender: FDA-Public Use
  Company Number: CA-UNITED THERAPEUTICS-UNT-2024-001889

PATIENT
  Age: 11 Year
  Sex: Female
  Weight: 24.943 kg

DRUGS (2)
  1. REMODULIN [Suspect]
     Active Substance: TREPROSTINIL
     Indication: Pulmonary arterial hypertension
     Dosage: APPROX. 0.147 ?G/KG, CONTINUING
     Route: 058
  2. REMODULIN [Suspect]
     Active Substance: TREPROSTINIL
     Dosage: UNK, CONTINUING
     Route: 058
     Dates: start: 20170814

REACTIONS (4)
  - Weight gain poor [Not Recovered/Not Resolved]
  - Failure to thrive [Unknown]
  - Decreased appetite [Not Recovered/Not Resolved]
  - Echocardiogram abnormal [Unknown]

NARRATIVE: CASE EVENT DATE: 20240228
